FAERS Safety Report 9348476 (Version 2)
Quarter: 2013Q3

REPORT INFORMATION
  Report Type: Spontaneous
  Country: FR (occurrence: FR)
  Receive Date: 20130614
  Receipt Date: 20130827
  Transmission Date: 20140515
  Serious: Yes (Death, Life-Threatening)
  Sender: FDA-Public Use
  Company Number: FR-ASTELLAS-2013EU005005

PATIENT
  Age: 62 Year
  Sex: Male

DRUGS (5)
  1. PROGRAF [Suspect]
     Indication: LIVER TRANSPLANT
     Dosage: UNK
     Route: 048
  2. PIPERACILLIN W/TAZOBACTAM          /01173601/ [Concomitant]
     Indication: ANTIBIOTIC PROPHYLAXIS
     Dosage: UNK
     Route: 065
  3. GENTAMICIN [Concomitant]
     Dosage: UNK
     Route: 065
  4. CORTICOSTEROID NOS [Concomitant]
     Dosage: UNK
     Route: 065
  5. MYCOPHENOLATE MOFETIL [Concomitant]
     Dosage: UNK
     Route: 065

REACTIONS (8)
  - Device related infection [Fatal]
  - Escherichia sepsis [Fatal]
  - Necrotising fasciitis [Fatal]
  - Septic shock [Fatal]
  - Multi-organ failure [Fatal]
  - Haemodynamic instability [Fatal]
  - Renal failure acute [Fatal]
  - Pneumonia [Recovered/Resolved]
